FAERS Safety Report 8588727-1 (Version None)
Quarter: 2012Q3

REPORT INFORMATION
  Report Type: 
  Country: None (occurrence: None)
  Receive Date: 20120813
  Receipt Date: 20120809
  Transmission Date: 20120928
  Serious: Yes (Other)
  Sender: FDA-Public Use
  Company Number: PHHY2012JP069008

PATIENT
  Age: 82 Year
  Sex: Male

DRUGS (4)
  1. NORVASC [Concomitant]
     Route: 048
  2. RABEPRAZOLE SODIUM [Concomitant]
     Route: 048
  3. DIOVAN [Suspect]
     Indication: HYPERTENSION
     Dosage: 20 MG, DAILY
     Route: 048
     Dates: start: 20120425, end: 20120620
  4. DIOVAN [Suspect]
     Dosage: 40 MG, DAILY
     Route: 048
     Dates: start: 20120620

REACTIONS (3)
  - DRUG-INDUCED LIVER INJURY [None]
  - RENAL DISORDER [None]
  - BLOOD CREATINE PHOSPHOKINASE INCREASED [None]
